FAERS Safety Report 15767981 (Version 1)
Quarter: 2018Q4

REPORT INFORMATION
  Report Type: Spontaneous
  Country: SE (occurrence: SE)
  Receive Date: 20181227
  Receipt Date: 20181227
  Transmission Date: 20190205
  Serious: Yes (Other)
  Sender: FDA-Public Use
  Company Number: SE-MYLANLABS-2018M1096209

PATIENT
  Age: 42 Year
  Sex: Male

DRUGS (6)
  1. VANCOMYCIN [Suspect]
     Active Substance: VANCOMYCIN
     Dosage: UNK
     Dates: start: 20180524, end: 20180524
  2. KONAKION [Concomitant]
     Active Substance: PHYTONADIONE
     Dosage: UNK
  3. ACETYLCYSTEIN [Concomitant]
     Active Substance: ACETYLCYSTEINE
     Dosage: UNK
  4. BENZYLPENICILLIN [Suspect]
     Active Substance: PENICILLIN G
     Indication: ENDOCARDITIS BACTERIAL
     Dosage: UNK
     Dates: start: 20180523, end: 20180523
  5. BENZYLPENICILLIN [Suspect]
     Active Substance: PENICILLIN G
     Dosage: UNK
     Dates: start: 20180416, end: 20180506
  6. VANCOMYCIN [Suspect]
     Active Substance: VANCOMYCIN
     Indication: ENDOCARDITIS BACTERIAL
     Dosage: UNK
     Dates: start: 20180405, end: 20180511

REACTIONS (2)
  - Rash [Unknown]
  - Pruritus [Unknown]

NARRATIVE: CASE EVENT DATE: 201805
